FAERS Safety Report 5040689-X (Version None)
Quarter: 2006Q2

REPORT INFORMATION
  Report Type: 
  Country: None (occurrence: None)
  Receive Date: 20060629
  Receipt Date: 20060629
  Transmission Date: 20061013
  Serious: Yes (Other)
  Sender: FDA-Public Use
  Company Number: None

PATIENT
  Sex: Male
  Weight: 85.7 kg

DRUGS (1)
  1. MIRAPEX [Suspect]
     Indication: PARKINSON'S DISEASE
     Dosage: 1/2 A TABLET TWICE DAILY PO
     Route: 048
     Dates: start: 20051220, end: 20060522

REACTIONS (3)
  - ARTHRALGIA [None]
  - GROIN PAIN [None]
  - RHABDOMYOLYSIS [None]
